FAERS Safety Report 19921257 (Version 6)
Quarter: 2021Q4

REPORT INFORMATION
  Report Type: Other
  Country: US (occurrence: US)
  Receive Date: 20211006
  Receipt Date: 20211211
  Transmission Date: 20220304
  Serious: Yes (Hospitalization)
  Sender: FDA-Public Use
  Company Number: US-NEUROCRINE BIOSCIENCES INC.-2021NBI05476

PATIENT

DRUGS (2)
  1. INGREZZA [Suspect]
     Active Substance: VALBENAZINE
     Indication: Tardive dyskinesia
     Dosage: 40 MILLIGRAM, QD
     Route: 048
     Dates: start: 20210917, end: 20211101
  2. THORAZINE [Suspect]
     Active Substance: CHLORPROMAZINE

REACTIONS (15)
  - Oral disorder [Unknown]
  - Parkinsonism [Unknown]
  - Tardive dyskinesia [Unknown]
  - Dysgeusia [Unknown]
  - Nystagmus [Unknown]
  - Decreased appetite [Unknown]
  - Muscle spasticity [Unknown]
  - Limb discomfort [Unknown]
  - Pain in extremity [Unknown]
  - Respiratory rate decreased [Unknown]
  - Excessive eye blinking [Unknown]
  - Somnolence [Unknown]
  - Tremor [Unknown]
  - Fatigue [Unknown]
  - Drug ineffective [Unknown]

NARRATIVE: CASE EVENT DATE: 20210917
